FAERS Safety Report 22131713 (Version 1)
Quarter: 2023Q1

REPORT INFORMATION
  Report Type: Report from Study
  Country: US (occurrence: US)
  Receive Date: 20230323
  Receipt Date: 20230323
  Transmission Date: 20230418
  Serious: Yes (Hospitalization)
  Sender: FDA-Public Use
  Company Number: US-GILEAD-2022-0608432

PATIENT
  Age: 73 Year
  Sex: Male
  Weight: 70 kg

DRUGS (38)
  1. BREXUCABTAGENE AUTOLEUCEL [Suspect]
     Active Substance: BREXUCABTAGENE AUTOLEUCEL
     Indication: Mantle cell lymphoma
     Dosage: 68 ML
     Route: 042
     Dates: start: 20221129, end: 20221129
  2. CYCLOPHOSPHAMIDE [Suspect]
     Active Substance: CYCLOPHOSPHAMIDE
     Indication: Bone marrow conditioning regimen
     Dosage: 905 (UNITS NOT PROVIDED)
     Route: 065
     Dates: start: 20221019, end: 20221020
  3. FLUDARABINE [Suspect]
     Active Substance: FLUDARABINE PHOSPHATE
     Indication: Bone marrow conditioning regimen
     Dosage: 50 (UNITS NOT PROVIDED)
     Route: 065
     Dates: start: 20221019, end: 20221019
  4. MESNA [Suspect]
     Active Substance: MESNA
     Indication: Prophylaxis
     Dosage: 724 (UNITS NOT PROVIDED)
     Route: 065
     Dates: start: 20221019, end: 20221020
  5. FOSAPREPITANT [Concomitant]
     Active Substance: FOSAPREPITANT
     Dosage: 150,MG,ONCE
     Route: 042
     Dates: start: 20221124, end: 20221124
  6. ONDANSETRON [Concomitant]
     Active Substance: ONDANSETRON
     Dosage: 16,MG,DAILY
     Route: 042
     Dates: start: 20221124, end: 20221126
  7. ONDANSETRON [Concomitant]
     Active Substance: ONDANSETRON
     Dosage: 4,MG,OTHER
     Route: 042
     Dates: start: 20221202, end: 20221202
  8. PLATELETS [Concomitant]
     Active Substance: HUMAN PLATELET, ALLOGENIC
     Dosage: 1,OTHER,ONCE
     Route: 042
     Dates: start: 20221124, end: 20221124
  9. PLATELETS [Concomitant]
     Active Substance: HUMAN PLATELET, ALLOGENIC
     Dosage: 1,OTHER,ONCE
     Route: 042
     Dates: start: 20221203, end: 20221203
  10. PLATELETS [Concomitant]
     Active Substance: HUMAN PLATELET, ALLOGENIC
     Dosage: 1,OTHER,ONCE
     Route: 042
     Dates: start: 20221205, end: 20221205
  11. PLATELETS [Concomitant]
     Active Substance: HUMAN PLATELET, ALLOGENIC
     Dosage: 1,OTHER,ONCE
     Route: 042
     Dates: start: 20221220, end: 20221220
  12. PLATELETS [Concomitant]
     Active Substance: HUMAN PLATELET, ALLOGENIC
     Dosage: 1,OTHER,ONCE
     Route: 042
     Dates: start: 20221227, end: 20221227
  13. MAGNESIUM SULFATE [Concomitant]
     Active Substance: MAGNESIUM SULFATE
     Dosage: 2,G,ONCE
     Route: 042
     Dates: start: 20221128, end: 20221128
  14. MAGNESIUM SULFATE [Concomitant]
     Active Substance: MAGNESIUM SULFATE
     Dosage: 2,G,ONCE
     Route: 042
     Dates: start: 20221130, end: 20221130
  15. MAGNESIUM SULFATE [Concomitant]
     Active Substance: MAGNESIUM SULFATE
     Dosage: 4,G,OTHER
     Route: 042
     Dates: start: 20221202, end: 20221203
  16. MAGNESIUM SULFATE [Concomitant]
     Active Substance: MAGNESIUM SULFATE
     Dosage: 2,G,ONCE
     Route: 042
     Dates: start: 20221212, end: 20221212
  17. DIPHENHYDRAMINE [Concomitant]
     Active Substance: DIPHENHYDRAMINE
     Dosage: 25,MG,ONCE
     Route: 042
     Dates: start: 20221129, end: 20221129
  18. PIPERACILLIN SODIUM\TAZOBACTAM SODIUM [Concomitant]
     Active Substance: PIPERACILLIN SODIUM\TAZOBACTAM SODIUM
     Dosage: 4.5,G,OTHER
     Route: 042
     Dates: start: 20221201, end: 20221209
  19. POTASSIUM CHLORIDE [Concomitant]
     Active Substance: POTASSIUM CHLORIDE
     Dosage: 40,OTHER,ONCE
     Route: 048
     Dates: start: 20221202, end: 20221202
  20. TOCILIZUMAB [Concomitant]
     Active Substance: TOCILIZUMAB
     Dosage: 502.4,MG,ONCE
     Route: 042
     Dates: start: 20221202, end: 20221202
  21. TOCILIZUMAB [Concomitant]
     Active Substance: TOCILIZUMAB
     Dosage: 503.2,MG,OTHER
     Route: 042
     Dates: start: 20221203, end: 20221204
  22. ANAKINRA [Concomitant]
     Active Substance: ANAKINRA
     Dosage: 100,MG,OTHER
     Route: 058
     Dates: start: 20221204, end: 20221212
  23. ANAKINRA [Concomitant]
     Active Substance: ANAKINRA
     Dosage: 100,MG,OTHER
     Route: 058
     Dates: start: 20221212, end: 20221212
  24. ANAKINRA [Concomitant]
     Active Substance: ANAKINRA
     Dosage: 100,MG,OTHER
     Route: 058
     Dates: start: 20221213, end: 20221214
  25. LEVETIRACETAM [Concomitant]
     Active Substance: LEVETIRACETAM
     Dosage: 500,MG,OTHER
     Route: 042
     Dates: start: 20221206, end: 20221214
  26. LEVOFLOXACIN [Concomitant]
     Active Substance: LEVOFLOXACIN
     Dosage: 500,MG,DAILY
     Route: 048
     Dates: start: 20221209
  27. ATOVAQUONE [Concomitant]
     Active Substance: ATOVAQUONE
     Dosage: 1500,MG,DAILY
     Route: 048
     Dates: start: 20221219
  28. FILGRASTIM SNDZ [Concomitant]
     Dosage: 480,OTHER,ONCE
     Route: 058
     Dates: start: 20221220, end: 20221220
  29. FILGRASTIM SNDZ [Concomitant]
     Dosage: 480,OTHER,OTHER
     Route: 058
     Dates: start: 20221223, end: 20230227
  30. DEXAMETHASONE [Concomitant]
     Active Substance: DEXAMETHASONE
     Dosage: 10,MG,ONCE
     Route: 042
     Dates: start: 20221206, end: 20221206
  31. DEXAMETHASONE [Concomitant]
     Active Substance: DEXAMETHASONE
     Dosage: 10,MG,ONCE
     Route: 042
     Dates: start: 20221208, end: 20221208
  32. DEXAMETHASONE [Concomitant]
     Active Substance: DEXAMETHASONE
     Dosage: 10,MG,ONCE
     Route: 042
     Dates: start: 20221210, end: 20221210
  33. SODIUM CHLORIDE [Concomitant]
     Active Substance: SODIUM CHLORIDE
     Dosage: 0.9,OTHER,ONCE
     Route: 042
     Dates: start: 20221220, end: 20221220
  34. SODIUM CHLORIDE [Concomitant]
     Active Substance: SODIUM CHLORIDE
     Dosage: 500,ML,ONCE
     Route: 042
     Dates: start: 20221215, end: 20221215
  35. SODIUM CHLORIDE [Concomitant]
     Active Substance: SODIUM CHLORIDE
     Dosage: 500,ML,ONCE
     Route: 042
     Dates: start: 20221216, end: 20221216
  36. SODIUM CHLORIDE [Concomitant]
     Active Substance: SODIUM CHLORIDE
     Dosage: 500,ML,ONCE
     Route: 042
     Dates: start: 20221217, end: 20221217
  37. SODIUM CHLORIDE [Concomitant]
     Active Substance: SODIUM CHLORIDE
     Dosage: 1500,ML,ONCE
     Route: 042
     Dates: start: 20221218, end: 20221218
  38. SODIUM CHLORIDE [Concomitant]
     Active Substance: SODIUM CHLORIDE
     Dosage: 500,ML,ONCE
     Route: 042
     Dates: start: 20221219, end: 20221219

REACTIONS (6)
  - Agraphia [Recovered/Resolved]
  - Urinary incontinence [Recovered/Resolved]
  - Somnolence [Recovered/Resolved]
  - Motor dysfunction [Recovered/Resolved]
  - Headache [Recovered/Resolved]
  - Encephalopathy [Recovered/Resolved]

NARRATIVE: CASE EVENT DATE: 20221206
